FAERS Safety Report 11762624 (Version 2)
Quarter: 2017Q3

REPORT INFORMATION
  Report Type: Spontaneous
  Country: US (occurrence: US)
  Receive Date: 20151120
  Receipt Date: 20170829
  Transmission Date: 20171127
  Serious: Yes (Life-Threatening, Hospitalization, Other)
  Sender: FDA-Public Use
  Company Number: US-ASTRAZENECA-1998AU02823

PATIENT
  Age: 558 Month
  Sex: Male
  Weight: 122.5 kg

DRUGS (27)
  1. BRILINTA [Suspect]
     Active Substance: TICAGRELOR
     Indication: DIABETES MELLITUS
     Route: 048
     Dates: start: 2014, end: 2017
  2. ASPIRIN. [Concomitant]
     Active Substance: ASPIRIN
     Indication: ANTIPLATELET THERAPY
     Route: 048
     Dates: start: 2008
  3. ASPIRIN. [Concomitant]
     Active Substance: ASPIRIN
     Indication: SUPPLEMENTATION THERAPY
     Route: 048
     Dates: start: 2008
  4. INSULIN [Concomitant]
     Active Substance: INSULIN NOS
     Dates: start: 2010
  5. BRILINTA [Suspect]
     Active Substance: TICAGRELOR
     Indication: CORONARY ARTERY DISEASE
     Route: 048
     Dates: start: 2014, end: 2017
  6. ASPIRIN. [Concomitant]
     Active Substance: ASPIRIN
     Indication: SUPPLEMENTATION THERAPY
     Route: 048
     Dates: start: 2014
  7. PREDNISONE. [Concomitant]
     Active Substance: PREDNISONE
     Indication: ARTHRALGIA
     Route: 048
     Dates: start: 2008
  8. FLORINEF ACETATE [Concomitant]
     Active Substance: FLUDROCORTISONE ACETATE
     Indication: ADDISON^S DISEASE
     Route: 048
     Dates: start: 2008
  9. VITAMIN [Concomitant]
     Active Substance: VITAMINS
     Indication: ROUTINE HEALTH MAINTENANCE
     Dosage: 1 TO 2 CAPSULES OF VITAMINS DAILY
     Route: 048
     Dates: start: 2012
  10. AXID [Concomitant]
     Active Substance: NIZATIDINE
     Indication: GASTROOESOPHAGEAL REFLUX DISEASE
     Route: 048
     Dates: start: 2013
  11. FOLIC ACID. [Concomitant]
     Active Substance: FOLIC ACID
     Indication: HOMOCYSTINAEMIA
     Route: 048
     Dates: start: 2012
  12. HYDROCORTISONE. [Concomitant]
     Active Substance: HYDROCORTISONE
     Indication: CORTISOL DECREASED
     Route: 048
     Dates: start: 2008
  13. IRON [Concomitant]
     Active Substance: IRON
     Indication: ANAEMIA
     Route: 048
     Dates: start: 2012
  14. CRESTOR [Suspect]
     Active Substance: ROSUVASTATIN CALCIUM
     Indication: BLOOD CHOLESTEROL ABNORMAL
     Route: 048
  15. BRILINTA [Suspect]
     Active Substance: TICAGRELOR
     Indication: CARDIAC ARREST
     Route: 048
     Dates: start: 2014, end: 2017
  16. ASPIRIN. [Concomitant]
     Active Substance: ASPIRIN
     Indication: ANTIPLATELET THERAPY
     Route: 048
     Dates: start: 2014
  17. IRON [Concomitant]
     Active Substance: IRON
     Indication: EPISTAXIS
     Route: 048
     Dates: start: 2012
  18. FLUCONAZOLE. [Suspect]
     Active Substance: FLUCONAZOLE
     Route: 065
     Dates: start: 2015
  19. PRILOSEC [Suspect]
     Active Substance: OMEPRAZOLE MAGNESIUM
     Route: 048
  20. BRILINTA [Suspect]
     Active Substance: TICAGRELOR
     Indication: DIABETES MELLITUS
     Route: 048
  21. BRILINTA [Suspect]
     Active Substance: TICAGRELOR
     Indication: STENT PLACEMENT
     Route: 048
     Dates: start: 2014, end: 2017
  22. FOLIC ACID. [Concomitant]
     Active Substance: FOLIC ACID
     Indication: CARDIAC DISORDER
     Route: 048
  23. BRILINTA [Suspect]
     Active Substance: TICAGRELOR
     Indication: CARDIAC ARREST
     Route: 048
  24. BRILINTA [Suspect]
     Active Substance: TICAGRELOR
     Indication: STENT PLACEMENT
     Route: 048
  25. BRILINTA [Suspect]
     Active Substance: TICAGRELOR
     Indication: CORONARY ARTERY DISEASE
     Route: 048
  26. DIGOXIN. [Concomitant]
     Active Substance: DIGOXIN
     Indication: CARDIAC DISORDER
     Dosage: 0.125 MG, THREE TIMES IN A WEEK.0.125MG UNKNOWN
     Route: 048
     Dates: start: 2015
  27. PEPCID [Concomitant]
     Active Substance: FAMOTIDINE
     Indication: ABDOMINAL PAIN UPPER

REACTIONS (14)
  - Vomiting [Recovered/Resolved]
  - Product use issue [Not Recovered/Not Resolved]
  - Fatigue [Unknown]
  - Myocardial infarction [Recovered/Resolved]
  - Product use in unapproved indication [Recovered/Resolved]
  - Cardiac arrest [Recovered/Resolved]
  - Haemorrhage [Unknown]
  - Off label use [Not Recovered/Not Resolved]
  - Ejection fraction abnormal [Recovered/Resolved]
  - Prostate cancer [Unknown]
  - Blood creatine phosphokinase abnormal [Unknown]
  - Rib fracture [Recovered/Resolved]
  - Therapy cessation [Unknown]
  - Ventricular tachycardia [Recovered/Resolved]

NARRATIVE: CASE EVENT DATE: 199801
